FAERS Safety Report 5148260-6 (Version None)
Quarter: 2006Q4

REPORT INFORMATION
  Report Type: 
  Country: None (occurrence: None)
  Receive Date: 20061106
  Receipt Date: 20060911
  Transmission Date: 20070319
  Serious: Yes (Death)
  Sender: FDA-Public Use
  Company Number: AZAAU200600338

PATIENT
  Age: 60 Year
  Sex: Female
  Weight: 80 kg

DRUGS (14)
  1. AZACITIDINE (AZACITIDINE) [Suspect]
     Indication: MYELODYSPLASTIC SYNDROME
     Dosage: 75 MG/M2 (DAILY X 7 DAYS), SUBCUTANEOUS
     Route: 058
     Dates: start: 20060822, end: 20060828
  2. CARBAMAZEPINE [Concomitant]
  3. METOCLOPRAMIDE [Concomitant]
  4. DESFERIOXAMINE MESYLATE (DEFEROXAMINE MESILATE) [Concomitant]
  5. METOPROLOL [Concomitant]
  6. TELMISARTAN [Concomitant]
  7. FUROSEMIDE [Concomitant]
  8. TRANEXAMIC ACID [Concomitant]
  9. VORICONAZOLE [Concomitant]
  10. VALPROATE SODIUM [Concomitant]
  11. AMITRIPTYLINE HCL [Concomitant]
  12. NEUPOGEN [Concomitant]
  13. VALACYCLOVIR HCL [Concomitant]
  14. DIGOXIN [Concomitant]

REACTIONS (14)
  - AREFLEXIA [None]
  - BRAIN OEDEMA [None]
  - BREATH SOUNDS ABSENT [None]
  - CEREBRAL HAEMORRHAGE [None]
  - CONSCIOUSNESS FLUCTUATING [None]
  - GRAND MAL CONVULSION [None]
  - HEART SOUNDS ABNORMAL [None]
  - HYPERTENSION [None]
  - MOVEMENT DISORDER [None]
  - MYELODYSPLASTIC SYNDROME [None]
  - OXYGEN SATURATION DECREASED [None]
  - PUPIL FIXED [None]
  - THROMBOCYTOPENIA [None]
  - UNRESPONSIVE TO STIMULI [None]
